FAERS Safety Report 5805656-4 (Version None)
Quarter: 2008Q3

REPORT INFORMATION
  Report Type: 
  Country: None (occurrence: None)
  Receive Date: 20080710
  Receipt Date: 20080619
  Transmission Date: 20090109
  Serious: No
  Sender: FDA-Public Use
  Company Number: A0722888A

PATIENT
  Age: 88 Year
  Sex: Female
  Weight: 79.5 kg

DRUGS (9)
  1. TYKERB [Suspect]
     Indication: BREAST CANCER
     Dosage: 1000MG PER DAY
     Route: 048
     Dates: start: 20080307, end: 20080516
  2. XELODA [Suspect]
  3. GLIPIZIDE [Concomitant]
  4. ASPIRIN [Concomitant]
  5. AVALIDE [Concomitant]
  6. NORVASC [Concomitant]
  7. LIPITOR [Concomitant]
  8. PAXIL [Concomitant]
  9. AMBIEN [Concomitant]

REACTIONS (1)
  - FATIGUE [None]
